FAERS Safety Report 6727314-4 (Version None)
Quarter: 2010Q2

REPORT INFORMATION
  Report Type: 
  Country: None (occurrence: None)
  Receive Date: 20100517
  Receipt Date: 20100512
  Transmission Date: 20101027
  Serious: Yes (Life-Threatening, Hospitalization)
  Sender: FDA-Public Use
  Company Number: ES-JNJFOC-20100504295

PATIENT
  Age: 27 Year
  Sex: Male

DRUGS (4)
  1. TOPAMAX [Suspect]
     Indication: BIPOLAR I DISORDER
     Route: 048
  2. ABILIFY [Interacting]
     Indication: BIPOLAR I DISORDER
     Route: 048
  3. PERPHENAZINE [Interacting]
     Indication: BIPOLAR I DISORDER
     Route: 048
  4. SEROQUEL [Interacting]
     Indication: BIPOLAR I DISORDER

REACTIONS (8)
  - CEREBRAL ISCHAEMIA [None]
  - COMA [None]
  - DRUG INTERACTION [None]
  - DYSARTHRIA [None]
  - HYPERTHERMIA MALIGNANT [None]
  - PARAPARESIS [None]
  - RESPIRATORY FAILURE [None]
  - VISUAL IMPAIRMENT [None]
